FAERS Safety Report 25917542 (Version 1)
Quarter: 2025Q4

REPORT INFORMATION
  Report Type: Spontaneous
  Country: EU (occurrence: EU)
  Receive Date: 20251014
  Receipt Date: 20251014
  Transmission Date: 20260118
  Serious: Yes (Hospitalization, Other)
  Sender: AUROBINDO
  Company Number: EU-AFSSAPS-PP2025001069

PATIENT
  Age: 59 Year
  Sex: Female
  Weight: 65 kg

DRUGS (3)
  1. FULVESTRANT [Suspect]
     Active Substance: FULVESTRANT
     Indication: Breast cancer metastatic
     Dosage: 250 MG/DAY: DAY 1 (07/25/2025), DAY 15 (08/08/2025), DAY 29 (08/22/2025)
     Route: 030
     Dates: start: 20250725, end: 20250922
  2. IBRANCE [Suspect]
     Active Substance: PALBOCICLIB
     Indication: Breast cancer metastatic
     Dosage: 1ST TREATMENT: 125 MG/DAY FROM 07/25/25 TO 08/14/25. 2ND TREATMENT: 100 MG/DAY FROM 08/28/2025 TO 09
     Route: 048
     Dates: start: 20250725
  3. DENOSUMAB [Suspect]
     Active Substance: DENOSUMAB
     Indication: Metastases to bone
     Dosage: 120 MILLIGRAM/ MONTH
     Route: 058
     Dates: start: 20250822, end: 20250822

REACTIONS (1)
  - Ischaemic stroke [Recovered/Resolved with Sequelae]

NARRATIVE: CASE EVENT DATE: 20250906
